FAERS Safety Report 15990532 (Version 1)
Quarter: 2019Q1

REPORT INFORMATION
  Report Type: Spontaneous
  Country: US (occurrence: US)
  Receive Date: 20190221
  Receipt Date: 20190221
  Transmission Date: 20190418
  Serious: Yes (Other)
  Sender: FDA-Public Use
  Company Number: US-MYLANLABS-2019M1016230

PATIENT
  Age: 16 Year
  Sex: Male

DRUGS (22)
  1. CLOZAPINE. [Suspect]
     Active Substance: CLOZAPINE
     Dosage: DAY 6, DAY 9-10, DAY 12, DAY 14-15, DAY 18, DAY 25, DAY 27; AT NIGHT (Q.H.S)
     Route: 065
  2. ARIPIPRAZOLE. [Suspect]
     Active Substance: ARIPIPRAZOLE
     Dosage: 30 MILLIGRAM
     Route: 048
  3. OLANZAPINE. [Suspect]
     Active Substance: OLANZAPINE
     Indication: SCHIZOAFFECTIVE DISORDER
     Route: 065
  4. LITHIUM. [Concomitant]
     Active Substance: LITHIUM
     Indication: PRODUCT USED FOR UNKNOWN INDICATION
     Route: 048
  5. CLOZAPINE. [Suspect]
     Active Substance: CLOZAPINE
     Dosage: DAY 2, DAY 4, DAY 29-32, DAY 34, DAY 36; AT NIGHT (Q.H.S)
     Route: 065
  6. FLUVOXAMINE [Concomitant]
     Active Substance: FLUVOXAMINE
     Dosage: DAY 19-20, DAY 22, DAY 24
     Route: 065
  7. FLUVOXAMINE [Concomitant]
     Active Substance: FLUVOXAMINE
     Dosage: DAY 4-6, DAY 8-11
     Route: 065
  8. CLOZAPINE. [Suspect]
     Active Substance: CLOZAPINE
     Indication: SCHIZOAFFECTIVE DISORDER
     Dosage: ON DAY 1
     Route: 065
  9. CLOZAPINE. [Suspect]
     Active Substance: CLOZAPINE
     Dosage: DAY 5
     Route: 065
  10. RISPERIDONE. [Suspect]
     Active Substance: RISPERIDONE
     Indication: SCHIZOAFFECTIVE DISORDER
     Dosage: EVERY MORNING
     Route: 048
  11. RISPERIDONE. [Suspect]
     Active Substance: RISPERIDONE
     Dosage: EVERY NIGHT
     Route: 048
  12. DIPHENHYDRAMINE. [Concomitant]
     Active Substance: DIPHENHYDRAMINE
     Indication: PRODUCT USED FOR UNKNOWN INDICATION
     Route: 048
  13. FLUVOXAMINE [Concomitant]
     Active Substance: FLUVOXAMINE
     Dosage: DAY 12, DAY 14
     Route: 065
  14. DOXEPIN [Concomitant]
     Active Substance: DOXEPIN
     Indication: POOR QUALITY SLEEP
     Dosage: AT BEDTIME
     Route: 065
  15. CHLORPROMAZINE. [Concomitant]
     Active Substance: CHLORPROMAZINE
     Indication: PRODUCT USED FOR UNKNOWN INDICATION
     Dosage: EVERY OTHER DAY
     Route: 065
  16. FLUVOXAMINE [Concomitant]
     Active Substance: FLUVOXAMINE
     Indication: SCHIZOAFFECTIVE DISORDER
     Dosage: DAY 1-2
     Route: 065
  17. FLUVOXAMINE [Concomitant]
     Active Substance: FLUVOXAMINE
     Dosage: DAY 15, DAY 18
     Route: 065
  18. FLUVOXAMINE [Concomitant]
     Active Substance: FLUVOXAMINE
     Dosage: DAY 25, DAY 27, DAY 29-30
     Route: 065
  19. CLOZAPINE. [Suspect]
     Active Substance: CLOZAPINE
     Dosage: DAY 8, DAY 11, DAY 19-20, DAY 22, DAY 24
     Route: 065
  20. CLOZAPINE. [Suspect]
     Active Substance: CLOZAPINE
     Dosage: POSTDISCHARGE
     Route: 065
  21. ARIPIPRAZOLE. [Suspect]
     Active Substance: ARIPIPRAZOLE
     Indication: SCHIZOAFFECTIVE DISORDER
     Route: 048
  22. FLUVOXAMINE [Concomitant]
     Active Substance: FLUVOXAMINE
     Dosage: DAY 31-32, DAY 34, DAY 36 (AT NIGHT)
     Route: 065

REACTIONS (5)
  - Sedation [Unknown]
  - Drug ineffective [Unknown]
  - Dizziness [Unknown]
  - Weight increased [Unknown]
  - Salivary hypersecretion [Recovering/Resolving]
